FAERS Safety Report 8433045-5 (Version None)
Quarter: 2012Q2

REPORT INFORMATION
  Report Type: 
  Country: None (occurrence: None)
  Receive Date: 20120613
  Receipt Date: 20120601
  Transmission Date: 20120825
  Serious: Yes (Disabling, Other)
  Sender: FDA-Public Use
  Company Number: MX-BRISTOL-MYERS SQUIBB COMPANY-16660326

PATIENT
  Age: 62 Year
  Sex: Female
  Weight: 75 kg

DRUGS (4)
  1. METFORMIN HCL [Suspect]
     Indication: TYPE 2 DIABETES MELLITUS
     Dosage: 1DF=1 TABLET STRENGTH:850MG
     Route: 048
     Dates: start: 20090101
  2. IRBESARTAN AND HYDROCHLOROTHIAZIDE [Suspect]
     Indication: HYPERTENSION
     Dosage: 1DF=1 TAB 2002-JAN12,1TAB/24HRS JAN-FEB12,1TAB/12HRS FEB12-ONG,1TAB/24HRS
     Route: 048
     Dates: start: 20020101
  3. GLIMEPIRIDE [Suspect]
     Indication: TYPE 2 DIABETES MELLITUS
     Dosage: 1DF=1 TABLET STRENGTH:2MG
     Route: 048
     Dates: start: 20090101
  4. JANUVIA [Concomitant]
     Indication: TYPE 2 DIABETES MELLITUS
     Dosage: TABS
     Route: 048
     Dates: start: 20120101

REACTIONS (4)
  - TYPE 2 DIABETES MELLITUS [None]
  - HYPERGLYCAEMIA [None]
  - MEDICATION ERROR [None]
  - BLOOD PRESSURE INCREASED [None]
